FAERS Safety Report 6335184-1 (Version None)
Quarter: 2009Q3

REPORT INFORMATION
  Report Type: 
  Country: None (occurrence: None)
  Receive Date: 20090828
  Receipt Date: 20090828
  Transmission Date: 20100115
  Serious: Yes (Other)
  Sender: FDA-Public Use
  Company Number: None

PATIENT
  Age: 11 Year
  Sex: Male
  Weight: 53.5244 kg

DRUGS (3)
  1. TOPAMAX [Suspect]
     Dosage: 150 MORNING; 150 AFTERNOON  300MG A DAY GOOD
  2. TOPIRAMATE [Suspect]
     Indication: AUTISM
     Dosage: 150 MORNINGS; 150 AFTERNOONS  300 MG A DAY BAD
  3. TOPIRAMATE [Suspect]
     Indication: CONVULSION
     Dosage: 150 MORNINGS; 150 AFTERNOONS  300 MG A DAY BAD

REACTIONS (2)
  - AGGRESSION [None]
  - PRODUCT SUBSTITUTION ISSUE [None]
